FAERS Safety Report 5305738-X (Version None)
Quarter: 2007Q2

REPORT INFORMATION
  Report Type: 
  Country: None (occurrence: None)
  Receive Date: 20070416
  Receipt Date: 20070403
  Transmission Date: 20071010
  Serious: Yes (Life-Threatening)
  Sender: FDA-Public Use
  Company Number: 100#03#2007-01034

PATIENT
  Age: 47 Year
  Sex: Male

DRUGS (4)
  1. ONDANSETRON [Suspect]
     Indication: GENERAL ANAESTHESIA
     Dosage: 4 MG INTRAVENOUS
     Route: 042
     Dates: start: 20060619, end: 20060619
  2. BUPIVACAINE [Concomitant]
  3. FENTANYL [Concomitant]
  4. PROPOFOL [Concomitant]

REACTIONS (4)
  - BRONCHOSPASM [None]
  - HYPOTENSION [None]
  - SKIN TEST POSITIVE [None]
  - TRYPTASE INCREASED [None]
